FAERS Safety Report 6179062-X (Version None)
Quarter: 2009Q2

REPORT INFORMATION
  Report Type: 
  Country: None (occurrence: None)
  Receive Date: 20090505
  Receipt Date: 20090427
  Transmission Date: 20091009
  Serious: Yes (Other)
  Sender: FDA-Public Use
  Company Number: PHHY2009US15969

PATIENT
  Age: 54 Year
  Sex: Male

DRUGS (3)
  1. MYCOPHENOLIC ACID [Suspect]
     Indication: RENAL TRANSPLANT
  2. TACROLIMUS [Suspect]
     Indication: RENAL TRANSPLANT
  3. PREDNISONE [Suspect]
     Indication: RENAL TRANSPLANT

REACTIONS (3)
  - FOCAL SEGMENTAL GLOMERULOSCLEROSIS [None]
  - PLASMAPHERESIS [None]
  - PROTEINURIA [None]
